FAERS Safety Report 4397372-3 (Version None)
Quarter: 2004Q2

REPORT INFORMATION
  Report Type: 
  Country: None (occurrence: None)
  Receive Date: 20040621
  Receipt Date: 20031209
  Transmission Date: 20050107
  Serious: Yes (Death)
  Sender: FDA-Public Use
  Company Number: USA-2003-0011811

PATIENT
  Age: 42 Year
  Sex: Female

DRUGS (4)
  1. OXYCODONE HCL [Suspect]
     Dosage: MG,
  2. COCAINE (COCAINE) [Suspect]
     Dosage: MG,
  3. MIRTAZAPINE [Suspect]
     Dosage: MG,
  4. CITALOPRAM [Suspect]
     Dosage: MG,

REACTIONS (1)
  - MULTIPLE DRUG OVERDOSE ACCIDENTAL [None]
